FAERS Safety Report 5143564-5 (Version None)
Quarter: 2006Q4

REPORT INFORMATION
  Report Type: 
  Country: None (occurrence: None)
  Receive Date: 20061103
  Receipt Date: 20061026
  Transmission Date: 20070319
  Serious: Yes (Hospitalization)
  Sender: FDA-Public Use
  Company Number: BE-ABBOTT-06P-013-0348216-00

PATIENT
  Sex: Male
  Weight: 62 kg

DRUGS (11)
  1. HUMIRA [Suspect]
     Indication: RHEUMATOID ARTHRITIS
     Dosage: 40 MG
     Route: 058
     Dates: start: 20041108, end: 20051216
  2. SINTROM [Concomitant]
     Indication: DRUG USE FOR UNKNOWN INDICATION
  3. BROTIZOLAM [Concomitant]
     Indication: DRUG USE FOR UNKNOWN INDICATION
  4. ARTHROTEC [Concomitant]
     Indication: DRUG USE FOR UNKNOWN INDICATION
  5. TENOKMIN MINOK [Concomitant]
     Indication: DRUG USE FOR UNKNOWN INDICATION
  6. CORUNO [Concomitant]
     Indication: DRUG USE FOR UNKNOWN INDICATION
  7. METHYLPREDNISOLONE 4MG TAB [Concomitant]
     Indication: DRUG USE FOR UNKNOWN INDICATION
  8. CALCIUM [Concomitant]
     Indication: DRUG USE FOR UNKNOWN INDICATION
  9. MILOTEN [Concomitant]
     Indication: DRUG USE FOR UNKNOWN INDICATION
  10. COUDIO ASPIRINA [Concomitant]
     Indication: DRUG USE FOR UNKNOWN INDICATION
  11. CLARITHROMYCIN [Concomitant]
     Indication: DRUG USE FOR UNKNOWN INDICATION

REACTIONS (4)
  - ARTERIAL INSUFFICIENCY [None]
  - ARTERITIS [None]
  - GANGRENE [None]
  - TOE AMPUTATION [None]
